APPROVED DRUG PRODUCT: PIRFENIDONE
Active Ingredient: PIRFENIDONE
Strength: 267MG
Dosage Form/Route: CAPSULE;ORAL
Application: A212731 | Product #001 | TE Code: AB
Applicant: ACCORD HEALTHCARE INC
Approved: Jan 20, 2022 | RLD: No | RS: No | Type: RX